FAERS Safety Report 10202787 (Version 1)
Quarter: 2014Q2

REPORT INFORMATION
  Report Type: Spontaneous
  Country: US (occurrence: US)
  Receive Date: 20140528
  Receipt Date: 20140528
  Transmission Date: 20141212
  Serious: No
  Sender: FDA-Public Use
  Company Number: US-009507513-1405USA005517

PATIENT
  Sex: Female

DRUGS (2)
  1. SINEMET [Suspect]
     Indication: TREMOR
     Dosage: UNK, 25/100MG
     Route: 048
  2. LODOSYN [Concomitant]
     Route: 048

REACTIONS (2)
  - Nausea [Unknown]
  - Headache [Unknown]
